FAERS Safety Report 5573264-9 (Version None)
Quarter: 2007Q4

REPORT INFORMATION
  Report Type: 
  Country: None (occurrence: None)
  Receive Date: 20071220
  Receipt Date: 20071217
  Transmission Date: 20080405
  Serious: Yes (Death, Hospitalization)
  Sender: FDA-Public Use
  Company Number: 163-21880-07100082

PATIENT
  Age: 75 Year
  Sex: Female

DRUGS (11)
  1. REVLIMID [Suspect]
     Indication: ACUTE MYELOID LEUKAEMIA
     Dosage: 10 MG, QD, ORAL
     Route: 048
     Dates: start: 20070912, end: 20070101
  2. ACYCLOVIR [Concomitant]
  3. CALCIUM (CALCIUM) [Concomitant]
  4. GABAPENTIN [Concomitant]
  5. LEUCOVORIN CALCIUM [Concomitant]
  6. PRILOSEC [Concomitant]
  7. VORICONAZOLE (VORICONAZOLE) [Concomitant]
  8. OXYCONTIN [Concomitant]
  9. COMPAZINE (PROCHLORPERAZINE EDISYLATE) [Concomitant]
  10. MULTIVITAMIN (MULTIVITAMIN ^LAPPE^) [Concomitant]
  11. BACTRIM DS [Concomitant]

REACTIONS (3)
  - ACUTE MYELOID LEUKAEMIA [None]
  - MALIGNANT NEOPLASM PROGRESSION [None]
  - PNEUMONIA [None]
